FAERS Safety Report 23741148 (Version 1)
Quarter: 2024Q2

REPORT INFORMATION
  Report Type: Report from Study
  Country: US (occurrence: US)
  Receive Date: 20240415
  Receipt Date: 20240415
  Transmission Date: 20240716
  Serious: Yes (Hospitalization)
  Sender: FDA-Public Use
  Company Number: US-NOVPHSZ-PHEH2019US021115

PATIENT
  Sex: Female
  Weight: 115 kg

DRUGS (5)
  1. TREPROSTINIL [Suspect]
     Active Substance: TREPROSTINIL
     Dosage: 46 NG/KG/ MIN
     Route: 042
     Dates: start: 20230830
  2. TREPROSTINIL [Suspect]
     Active Substance: TREPROSTINIL
     Indication: Pulmonary arterial hypertension
     Dosage: 42 NG/KG/MIN, UNK
     Route: 042
     Dates: start: 20190422
  3. TREPROSTINIL [Suspect]
     Active Substance: TREPROSTINIL
     Dosage: 52 NG/KG/MIN, UNK
     Route: 042
     Dates: start: 20190422
  4. REMODULIN [Concomitant]
     Active Substance: TREPROSTINIL
     Indication: Product used for unknown indication
     Route: 065
  5. TADALAFIL [Concomitant]
     Active Substance: TADALAFIL
     Indication: Product used for unknown indication
     Route: 065

REACTIONS (8)
  - Dizziness [Unknown]
  - Skin discolouration [Unknown]
  - Skin exfoliation [Unknown]
  - Dry skin [Unknown]
  - Hot flush [Unknown]
  - Pain in extremity [Unknown]
  - Erythema [Unknown]
  - Pruritus [Unknown]
